FAERS Safety Report 8821868 (Version 3)
Quarter: 2012Q4

REPORT INFORMATION
  Report Type: 
  Country: JP (occurrence: JP)
  Receive Date: 20121002
  Receipt Date: 20121226
  Transmission Date: 20130627
  Serious: Yes (Hospitalization)
  Sender: FDA-Public Use
  Company Number: JP-PFIZER INC-2012243082

PATIENT
  Age: 54 Year
  Sex: Female
  Weight: 60 kg

DRUGS (3)
  1. LYRICA [Suspect]
     Indication: LUMBAR DISC HERNIATION
     Dosage: 75 mg, 1x/day
     Route: 048
     Dates: start: 201202, end: 20120911
  2. LYRICA [Suspect]
     Dosage: 5625 mg single
     Route: 048
     Dates: start: 20120912, end: 20120912
  3. DEPAS [Suspect]
     Dosage: 30 tablets daily
     Route: 048
     Dates: start: 20120912, end: 20120912

REACTIONS (3)
  - Intentional overdose [Recovered/Resolved]
  - Respiratory arrest [Recovered/Resolved]
  - Altered state of consciousness [Recovered/Resolved]
